FAERS Safety Report 16777007 (Version 3)
Quarter: 2019Q3

REPORT INFORMATION
  Report Type: Spontaneous
  Country: GR (occurrence: GR)
  Receive Date: 20190905
  Receipt Date: 20190923
  Transmission Date: 20191005
  Serious: Yes (Death, Life-Threatening, Hospitalization, Other)
  Sender: FDA-Public Use
  Company Number: PHHY2019GR204602

PATIENT
  Age: 66 Year
  Sex: Female

DRUGS (5)
  1. CAPECITABINE. [Suspect]
     Active Substance: CAPECITABINE
     Indication: ADENOCARCINOMA OF COLON
     Dosage: 2000 MG/M2 QD; FROM DAY 1- DAY 14, IN A 21 DAY CYCLE; PART OF CAPOX CHEMOTHERAPY REGIMEN
     Route: 065
  2. OXALIPLATIN. [Concomitant]
     Active Substance: OXALIPLATIN
     Indication: COLORECTAL CANCER
  3. FILGRASTIM [Suspect]
     Active Substance: FILGRASTIM
     Indication: PANCYTOPENIA
     Dosage: QD
     Route: 065
  4. CAPECITABINE. [Suspect]
     Active Substance: CAPECITABINE
     Indication: COLORECTAL CANCER
  5. OXALIPLATIN. [Concomitant]
     Active Substance: OXALIPLATIN
     Indication: ADENOCARCINOMA OF COLON
     Dosage: ON DAY 1, IN A 21 DAY CYCLE; PART OF CAPOX CHEMOTHERAPY REGIMEN
     Route: 065

REACTIONS (23)
  - Septic shock [Fatal]
  - Congestive cardiomyopathy [Fatal]
  - Colitis [Unknown]
  - Bone marrow failure [Recovered/Resolved]
  - Steatohepatitis [Fatal]
  - Diarrhoea haemorrhagic [Fatal]
  - Pneumonia [Fatal]
  - Mucosal inflammation [Fatal]
  - Nausea [Fatal]
  - Enterocolitis haemorrhagic [Fatal]
  - Diverticulitis [Fatal]
  - Atrial fibrillation [Fatal]
  - Toxicity to various agents [Fatal]
  - Pancytopenia [Fatal]
  - Respiratory failure [Fatal]
  - Cardiotoxicity [Fatal]
  - Neurotoxicity [Fatal]
  - Cardiogenic shock [Fatal]
  - Pericardial effusion [Fatal]
  - Generalised tonic-clonic seizure [Fatal]
  - Cardiac failure [Fatal]
  - Drug ineffective [Fatal]
  - Stomatitis [Unknown]
